FAERS Safety Report 7830893-7 (Version None)
Quarter: 2011Q4

REPORT INFORMATION
  Report Type: 
  Country: None (occurrence: None)
  Receive Date: 20111021
  Receipt Date: 20111018
  Transmission Date: 20120403
  Serious: No
  Sender: FDA-Public Use
  Company Number: US-PFIZER INC-US-WYE-H17786810

PATIENT
  Age: 88 Year
  Sex: Female

DRUGS (5)
  1. PREMARIN [Suspect]
     Dosage: 1.25 MG/UNK
     Route: 048
     Dates: start: 20100901
  2. PREMARIN [Suspect]
     Dosage: UNK
  3. MEDROXYPROGESTERONE ACETATE [Suspect]
     Dosage: 5 MG, UNK
     Route: 048
     Dates: start: 19630101
  4. PREMARIN [Suspect]
     Dosage: 1.25 MG, UNK
     Route: 048
     Dates: end: 20110101
  5. PREMARIN [Suspect]
     Dosage: UNK
     Dates: start: 20100901

REACTIONS (2)
  - DRUG INEFFECTIVE [None]
  - CIRCUMSTANCE OR INFORMATION CAPABLE OF LEADING TO MEDICATION ERROR [None]
